FAERS Safety Report 4291602-4 (Version None)
Quarter: 2004Q1

REPORT INFORMATION
  Report Type: 
  Country: None (occurrence: None)
  Receive Date: 20040126
  Receipt Date: 20031113
  Transmission Date: 20041129
  Serious: No
  Sender: FDA-Public Use
  Company Number: USA031152598

PATIENT
  Age: 76 Year
  Sex: Female
  Weight: 61 kg

DRUGS (3)
  1. FORTEO [Suspect]
     Indication: OSTEOPOROSIS
     Dates: start: 20031030
  2. ASPIRIN [Concomitant]
  3. GINKGO BILOBA [Concomitant]

REACTIONS (1)
  - INJECTION SITE HAEMORRHAGE [None]
